FAERS Safety Report 21944158 (Version 1)
Quarter: 2023Q1

REPORT INFORMATION
  Report Type: Spontaneous
  Country: US (occurrence: US)
  Receive Date: 20230202
  Receipt Date: 20230202
  Transmission Date: 20230418
  Serious: Yes (Death)
  Sender: FDA-Public Use
  Company Number: US-BTGSP-US-BTGSP-23-0013

PATIENT
  Age: 60 Year
  Sex: Male

DRUGS (10)
  1. CROFAB [Suspect]
     Active Substance: CROTALIDAE POLYVALENT IMMUNE FAB (OVINE)
     Indication: Snake bite
     Dosage: 62 VIALS
     Route: 065
  2. LACTATED RINGERS SOLUTION [Concomitant]
     Active Substance: CALCIUM CHLORIDE\POTASSIUM CHLORIDE\SODIUM CHLORIDE\SODIUM LACTATE
     Indication: Product used for unknown indication
     Dosage: 500 MILLILITER
  3. EPINEPHRINE [Concomitant]
     Active Substance: EPINEPHRINE
     Indication: Product used for unknown indication
     Dosage: THREE TIMES
     Route: 030
  4. EPINEPHRINE [Concomitant]
     Active Substance: EPINEPHRINE
     Dosage: UNK
     Route: 041
  5. DIPHENHYDRAMINE [Concomitant]
     Active Substance: DIPHENHYDRAMINE
     Indication: Product used for unknown indication
  6. METHYLPREDNISOLONE [Concomitant]
     Active Substance: METHYLPREDNISOLONE
     Indication: Product used for unknown indication
  7. DEXAMETHASONE [Concomitant]
     Active Substance: DEXAMETHASONE
     Indication: Product used for unknown indication
  8. NOREPINEPHRINE [Concomitant]
     Active Substance: NOREPINEPHRINE
     Indication: Product used for unknown indication
     Route: 041
  9. LORAZEPAM [Concomitant]
     Active Substance: LORAZEPAM
     Indication: Product used for unknown indication
  10. KETAMINE [Concomitant]
     Active Substance: KETAMINE
     Indication: Sedation

REACTIONS (13)
  - Disseminated intravascular coagulation [Fatal]
  - Cardiogenic shock [Fatal]
  - Liver function test increased [Fatal]
  - Urine output decreased [Fatal]
  - Blood urea increased [Fatal]
  - Blood creatinine increased [Fatal]
  - Blood creatine phosphokinase increased [Fatal]
  - Hypervolaemia [Fatal]
  - Mouth haemorrhage [Fatal]
  - Catheter site haemorrhage [Fatal]
  - Clostridium difficile infection [Fatal]
  - Platelet count decreased [Fatal]
  - Coagulation time prolonged [Fatal]
